FAERS Safety Report 18921576 (Version 1)
Quarter: 2021Q1

REPORT INFORMATION
  Report Type: Spontaneous
  Country: US (occurrence: US)
  Receive Date: 20210222
  Receipt Date: 20210222
  Transmission Date: 20210420
  Serious: Yes (Other)
  Sender: FDA-Public Use
  Company Number: US-GLAXOSMITHKLINE-US2021GSK048956

PATIENT
  Sex: Male

DRUGS (4)
  1. ZANTAC [Suspect]
     Active Substance: RANITIDINE HYDROCHLORIDE
     Indication: ABDOMINAL PAIN UPPER
     Dosage: 150 MG, QD
     Route: 065
     Dates: start: 201001, end: 202005
  2. RANITIDINE. [Suspect]
     Active Substance: RANITIDINE
     Indication: ABDOMINAL PAIN UPPER
     Dosage: 150 MG, QD
     Route: 065
     Dates: start: 201001, end: 202005
  3. RANITIDINE. [Suspect]
     Active Substance: RANITIDINE
     Indication: ABDOMINAL PAIN UPPER
     Dosage: 150 MG, QD
     Route: 065
     Dates: start: 201001, end: 202005
  4. ZANTAC [Suspect]
     Active Substance: RANITIDINE HYDROCHLORIDE
     Indication: ABDOMINAL PAIN UPPER
     Dosage: 150 MG, QD
     Route: 065
     Dates: start: 201001, end: 202005

REACTIONS (3)
  - Prostate cancer [Unknown]
  - Lung neoplasm malignant [Unknown]
  - Bone cancer [Unknown]
